FAERS Safety Report 7737937-1 (Version None)
Quarter: 2011Q3

REPORT INFORMATION
  Report Type: 
  Country: None (occurrence: None)
  Receive Date: 20110908
  Receipt Date: 20110906
  Transmission Date: 20111222
  Serious: Yes (Hospitalization, Other)
  Sender: FDA-Public Use
  Company Number: PHEH2011US03524

PATIENT
  Sex: Female
  Weight: 31.9 kg

DRUGS (2)
  1. EXJADE [Suspect]
     Indication: SICKLE CELL ANAEMIA
     Dosage: 625 MG, DAILY
     Route: 048
     Dates: start: 20110323, end: 20110521
  2. EXJADE [Suspect]
     Dosage: 625 MG, DAILY
     Route: 048

REACTIONS (1)
  - MENINGITIS [None]
